FAERS Safety Report 9697456 (Version 3)
Quarter: 2013Q4

REPORT INFORMATION
  Report Type: Report from Study
  Country: BE (occurrence: BE)
  Receive Date: 20131120
  Receipt Date: 20131222
  Transmission Date: 20140711
  Serious: Yes (Other)
  Sender: FDA-Public Use
  Company Number: PHHY2013BE104120

PATIENT
  Age: 40 Year
  Sex: Female

DRUGS (3)
  1. FTY 720 [Suspect]
     Indication: MULTIPLE SCLEROSIS
     Dosage: UNK
     Route: 048
     Dates: start: 20121127, end: 201310
  2. FTY 720 [Suspect]
     Dosage: UNK
     Route: 048
     Dates: start: 201310, end: 20131022
  3. FTY 720 [Suspect]
     Dosage: UNK
     Dates: start: 20131219

REACTIONS (2)
  - Fatigue [Recovered/Resolved]
  - Hypertension [Recovering/Resolving]
